FAERS Safety Report 8858782 (Version 1)
Quarter: 2012Q4

REPORT INFORMATION
  Report Type: Spontaneous
  Country: US (occurrence: None)
  Receive Date: 20121023
  Receipt Date: 20121023
  Transmission Date: 20130627
  Serious: No
  Sender: FDA-Public Use
  Company Number: None

PATIENT
  Sex: Male
  Weight: 59.5 kg

DRUGS (2)
  1. WARFARIN [Suspect]
     Indication: EMBOLIC STROKE
     Route: 048
     Dates: start: 20090731, end: 20120915
  2. VORICONAZOLE [Suspect]
     Indication: ASPERGILLOSIS
     Route: 048
     Dates: start: 20120904, end: 20120915

REACTIONS (8)
  - Aspergillosis [None]
  - Haemoptysis [None]
  - International normalised ratio increased [None]
  - Small intestinal obstruction [None]
  - Haemorrhage [None]
  - Mycobacterial infection [None]
  - Bronchopulmonary aspergillosis [None]
  - Lung infection [None]
